FAERS Safety Report 8941980 (Version 1)
Quarter: 2012Q4

REPORT INFORMATION
  Report Type: 
  Country: CA (occurrence: CA)
  Receive Date: 20121203
  Receipt Date: 20121203
  Transmission Date: 20130627
  Serious: Yes (Other)
  Sender: FDA-Public Use
  Company Number: CA-BAYER-2012-121851

PATIENT
  Weight: 2 kg

DRUGS (14)
  1. ASPIRIN [Suspect]
     Route: 064
  2. COSYNTROPIN [Suspect]
     Route: 064
  3. DIPHENHYDRAMINE [Suspect]
     Dosage: 200 mg, UNK
     Route: 064
  4. HYDROMORPHONE [Suspect]
     Route: 064
  5. HYDROXYZINE [Suspect]
     Dosage: 100 mg, UNK
     Route: 064
  6. INSULIN HUMAN [Suspect]
     Route: 064
  7. METOCLOPRAMIDE [Suspect]
     Route: 064
  8. MULTIVITAMIN [Suspect]
     Route: 064
  9. NOVORAPID [Suspect]
     Route: 064
  10. ONDANSETRON [Suspect]
     Route: 064
  11. OXAZEPAM [Suspect]
     Route: 064
  12. PANTOPRAZOLE [Suspect]
     Route: 064
  13. SUMATRIPTAN [Suspect]
     Route: 064
  14. THIAMINI CHLORIDUM [Suspect]
     Route: 064

REACTIONS (4)
  - Foetal growth restriction [Unknown]
  - Hypoglycaemia [Unknown]
  - Foetal exposure during pregnancy [Unknown]
  - Maternal drugs affecting foetus [None]
